FAERS Safety Report 11507313 (Version 1)
Quarter: 2015Q3

REPORT INFORMATION
  Report Type: Spontaneous
  Country: US (occurrence: US)
  Receive Date: 20150915
  Receipt Date: 20150915
  Transmission Date: 20151125
  Serious: Yes (Disabling, Other)
  Sender: FDA-Public Use
  Company Number: US-JUBILANT CADISTA PHARMACEUTICALS-2015JUB00275

PATIENT
  Sex: Female

DRUGS (2)
  1. PREDNISONE. [Suspect]
     Active Substance: PREDNISONE
     Indication: NEONATAL ALLOIMMUNE THROMBOCYTOPENIA
     Dosage: UNK, 1X/DAY
  2. INTRAVENOUS IMMUNE GLOBULIN [Concomitant]
     Indication: NEONATAL ALLOIMMUNE THROMBOCYTOPENIA
     Route: 042

REACTIONS (2)
  - Blindness [Recovered/Resolved with Sequelae]
  - Exposure during pregnancy [Unknown]
